FAERS Safety Report 18779441 (Version 6)
Quarter: 2021Q1

REPORT INFORMATION
  Report Type: Spontaneous
  Country: US (occurrence: US)
  Receive Date: 20210125
  Receipt Date: 20210316
  Transmission Date: 20210419
  Serious: Yes (Other)
  Sender: FDA-Public Use
  Company Number: US-GLAXOSMITHKLINE-US2021AMR011434

PATIENT
  Sex: Female

DRUGS (2)
  1. ZEJULA [Suspect]
     Active Substance: NIRAPARIB
     Indication: OVARIAN CANCER
     Dosage: 200 MG, QD
     Dates: start: 20210113
  2. ZEJULA [Suspect]
     Active Substance: NIRAPARIB
     Dosage: 1 DF, QD(1 CAPSULE)
     Dates: end: 20210220

REACTIONS (19)
  - Decreased appetite [Not Recovered/Not Resolved]
  - Joint stiffness [Unknown]
  - Adverse drug reaction [Not Recovered/Not Resolved]
  - Urine odour abnormal [Unknown]
  - Pain [Unknown]
  - Neuropathy peripheral [Unknown]
  - Myalgia [Not Recovered/Not Resolved]
  - Paraesthesia [Unknown]
  - Product dose omission issue [Unknown]
  - Joint swelling [Unknown]
  - Dizziness [Unknown]
  - Immune system disorder [Unknown]
  - Dysuria [Not Recovered/Not Resolved]
  - Weight decreased [Unknown]
  - Anxiety [Unknown]
  - Peripheral swelling [Unknown]
  - Neutrophil count decreased [Unknown]
  - Insomnia [Recovering/Resolving]
  - Intentional dose omission [Unknown]
